FAERS Safety Report 15786158 (Version 1)
Quarter: 2018Q4

REPORT INFORMATION
  Report Type: Spontaneous
  Country: US (occurrence: US)
  Receive Date: 20181212
  Receipt Date: 20181212
  Transmission Date: 20190205
  Serious: No
  Sender: FDA-Public Use
  Company Number: None

PATIENT
  Sex: Male

DRUGS (1)
  1. NORDITROPIN [Suspect]
     Active Substance: SOMATROPIN
     Dates: start: 201811, end: 201812

REACTIONS (2)
  - Refusal of treatment by relative [None]
  - Adverse event [None]

NARRATIVE: CASE EVENT DATE: 20181206
